FAERS Safety Report 4410972-7 (Version None)
Quarter: 2004Q3

REPORT INFORMATION
  Report Type: 
  Country: None (occurrence: None)
  Receive Date: 20040729
  Receipt Date: 20040720
  Transmission Date: 20050211
  Serious: Yes (Other)
  Sender: FDA-Public Use
  Company Number: US-GLAXOSMITHKLINE-A0519057A

PATIENT
  Sex: Male

DRUGS (4)
  1. LEXIVA [Suspect]
     Indication: HIV INFECTION
     Dosage: 4TAB PER DAY
     Route: 048
     Dates: start: 20040429
  2. NORVIR [Concomitant]
  3. VIREAD [Concomitant]
  4. EMTRIVA [Concomitant]

REACTIONS (5)
  - CYST [None]
  - FEELING HOT [None]
  - NAUSEA [None]
  - RASH MACULAR [None]
  - SCAR [None]
